FAERS Safety Report 10330793 (Version 1)
Quarter: 2014Q3

REPORT INFORMATION
  Report Type: Spontaneous
  Country: US (occurrence: None)
  Receive Date: 20140718
  Receipt Date: 20140718
  Transmission Date: 20150326
  Serious: No
  Sender: FDA-Public Use
  Company Number: None

PATIENT
  Age: 55 Year
  Sex: Female
  Weight: 43.09 kg

DRUGS (1)
  1. PREVIDENT [Suspect]
     Active Substance: SODIUM FLUORIDE
     Indication: SENSITIVITY OF TEETH
     Dosage: BRUSH 2 X DAY
     Dates: start: 20140716, end: 20140716

REACTIONS (2)
  - Rash pruritic [None]
  - Rash [None]

NARRATIVE: CASE EVENT DATE: 20140717
